FAERS Safety Report 22356060 (Version 3)
Quarter: 2023Q4

REPORT INFORMATION
  Report Type: Report from Study
  Country: DE (occurrence: DE)
  Receive Date: 20230523
  Receipt Date: 20231101
  Transmission Date: 20240110
  Serious: No
  Sender: FDA-Public Use
  Company Number: DE-PHARMAESSENTIA CORPORATION-DE-2023-PEC-001429

PATIENT
  Age: 52 Year
  Sex: Female

DRUGS (8)
  1. BESREMI [Suspect]
     Active Substance: ROPEGINTERFERON ALFA-2B-NJFT
     Indication: Polycythaemia vera
     Dosage: 50 MICROGRAM, Q2W
     Route: 058
     Dates: start: 20230309, end: 20230406
  2. BESREMI [Suspect]
     Active Substance: ROPEGINTERFERON ALFA-2B-NJFT
     Dosage: 100 MICROGRAM, Q2W
     Route: 058
     Dates: start: 20230406, end: 20230504
  3. BESREMI [Suspect]
     Active Substance: ROPEGINTERFERON ALFA-2B-NJFT
     Dosage: 150 MICROGRAM, Q2W
     Route: 058
     Dates: start: 20230504
  4. HYDROXYUREA [Concomitant]
     Active Substance: HYDROXYUREA
     Indication: Polycythaemia vera
     Dosage: MONDAY AND TUESDAY TAKEN ONCE DAILY, ALL OTHER DAYS TWICE DAILY.ON 23-APR-2023, THERAPY WAS DISCONTI
     Route: 065
     Dates: start: 2021, end: 20230423
  5. SINTROM [Concomitant]
     Active Substance: ACENOCOUMAROL
     Indication: Thrombosis
     Dosage: DOSAGE UNKNOWN.
     Route: 065
     Dates: start: 2023
  6. CARVEDILOL [Concomitant]
     Active Substance: CARVEDILOL
     Indication: Coronary artery disease
     Dosage: DOSING FREQUENCY: 2X
     Route: 065
     Dates: start: 2017
  7. OMEPRALAN [Concomitant]
     Indication: Prophylaxis against gastrointestinal ulcer
     Route: 065
     Dates: start: 2022
  8. Spironolcaton [Concomitant]
     Indication: Coronary artery disease
     Route: 065
     Dates: start: 2017

REACTIONS (1)
  - Varices oesophageal [Recovered/Resolved]

NARRATIVE: CASE EVENT DATE: 20230419
